FAERS Safety Report 8700687 (Version 2)
Quarter: 2013Q4

REPORT INFORMATION
  Report Type: Spontaneous
  Country: US (occurrence: US)
  Receive Date: 20120802
  Receipt Date: 20131108
  Transmission Date: 20140711
  Serious: Yes (Hospitalization)
  Sender: FDA-Public Use
  Company Number: US-009507513-1207USA011560

PATIENT
  Sex: Female
  Weight: 53.52 kg

DRUGS (1)
  1. NUVARING [Suspect]
     Indication: CONTRACEPTION
     Dosage: UNK
     Route: 067
     Dates: start: 200902, end: 201109

REACTIONS (2)
  - Gallbladder disorder [Recovering/Resolving]
  - Palpitations [Recovering/Resolving]
